FAERS Safety Report 19493068 (Version 1)
Quarter: 2021Q3

REPORT INFORMATION
  Report Type: Spontaneous
  Country: RO (occurrence: RO)
  Receive Date: 20210705
  Receipt Date: 20210705
  Transmission Date: 20211014
  Serious: Yes (Other)
  Sender: FDA-Public Use
  Company Number: RO-AMGEN-ROUSP2021101220

PATIENT
  Age: 78 Year
  Sex: Female

DRUGS (3)
  1. KYPROLIS [Suspect]
     Active Substance: CARFILZOMIB
     Indication: PLASMA CELL MYELOMA
     Dosage: 20 MILLIGRAM/SQ. METER
     Route: 042
     Dates: start: 201903, end: 202001
  2. KYPROLIS [Suspect]
     Active Substance: CARFILZOMIB
     Dosage: 56 MILLIGRAM/SQ. METER
     Route: 042
     Dates: start: 2021
  3. DEXAMETHASONE. [Concomitant]
     Active Substance: DEXAMETHASONE
     Indication: PLASMA CELL MYELOMA
     Dosage: 20 MILLIGRAM, QWK
     Route: 065
     Dates: start: 201903, end: 202001

REACTIONS (5)
  - Femur fracture [Unknown]
  - Musculoskeletal chest pain [Unknown]
  - Surgery [Unknown]
  - Spinal pain [Unknown]
  - Arthralgia [Unknown]

NARRATIVE: CASE EVENT DATE: 20200113
